FAERS Safety Report 6965291-1 (Version None)
Quarter: 2010Q3

REPORT INFORMATION
  Report Type: 
  Country: None (occurrence: None)
  Receive Date: 20100903
  Receipt Date: 20100831
  Transmission Date: 20110219
  Serious: Yes (Other)
  Sender: FDA-Public Use
  Company Number: US-JNJFOC-20100502252

PATIENT
  Sex: Male

DRUGS (2)
  1. CHILDRENS TYLENOL [Suspect]
     Route: 065
  2. CHILDRENS TYLENOL [Suspect]
     Indication: NASOPHARYNGITIS
     Route: 065

REACTIONS (2)
  - HEPATIC FAILURE [None]
  - PRODUCT QUALITY ISSUE [None]
